FAERS Safety Report 8151220-4 (Version None)
Quarter: 2012Q1

REPORT INFORMATION
  Report Type: 
  Country: None (occurrence: None)
  Receive Date: 20120220
  Receipt Date: 20120215
  Transmission Date: 20120608
  Serious: Yes (Death, Hospitalization, Other)
  Sender: FDA-Public Use
  Company Number: PHHY2012CN013046

PATIENT
  Age: 78 Year
  Sex: Male
  Weight: 70 kg

DRUGS (8)
  1. HEPARIN [Suspect]
     Dosage: 5000 U, UNFRACTIONATED HEPARIN
  2. CLOPIDOGREL [Concomitant]
     Dosage: 300 MG, BEFORE CORONARY ANGIOGRAPHY
  3. CLOPIDOGREL [Concomitant]
     Dosage: 75 MG, PER DAY
  4. ASPIRIN [Concomitant]
     Dosage: 300 MG
  5. TIROFIBAN [Concomitant]
     Dosage: 8.26 MG, FOR 12 HOURS
  6. DALTEPARIN SODIUM [Suspect]
     Dosage: 100 IU/KG, PER DAY
  7. HEPARIN [Suspect]
     Dosage: LOW MOLOEUCLAR WEIGHT HEPARIN
     Route: 058
  8. ASPIRIN [Concomitant]
     Dosage: 100 MG, PER DAY

REACTIONS (10)
  - HEPARIN-INDUCED THROMBOCYTOPENIA [None]
  - CORONARY ARTERY THROMBOSIS [None]
  - CHEST DISCOMFORT [None]
  - HEMIPARESIS [None]
  - DEVICE OCCLUSION [None]
  - CEREBRAL INFARCTION [None]
  - APHASIA [None]
  - CEREBROVASCULAR ACCIDENT [None]
  - CEREBRAL ARTERY THROMBOSIS [None]
  - CONFUSIONAL STATE [None]
